FAERS Safety Report 6593823-4 (Version None)
Quarter: 2010Q1

REPORT INFORMATION
  Report Type: 
  Country: None (occurrence: None)
  Receive Date: 20100218
  Receipt Date: 20100218
  Transmission Date: 20100710
  Serious: Yes (Hospitalization)
  Sender: FDA-Public Use
  Company Number: None

PATIENT
  Age: 62 Year
  Sex: Female
  Weight: 109.7705 kg

DRUGS (1)
  1. ST.JOSEPH ASPIRIN MCNEIL PPC INC [Suspect]
     Indication: ANTICOAGULANT THERAPY
     Dosage: 81MG DAILY PO
     Route: 048
     Dates: start: 20010110, end: 20100203

REACTIONS (4)
  - ABDOMINAL PAIN UPPER [None]
  - CELLULITIS [None]
  - DIARRHOEA [None]
  - NAUSEA [None]
